FAERS Safety Report 8424287-3 (Version None)
Quarter: 2012Q2

REPORT INFORMATION
  Report Type: 
  Country: None (occurrence: None)
  Receive Date: 20120608
  Receipt Date: 20111028
  Transmission Date: 20120825
  Serious: No
  Sender: FDA-Public Use
  Company Number: US-ASTRAZENECA-2011SE65459

PATIENT
  Age: 45 Year
  Sex: Male

DRUGS (1)
  1. PULMICORT FLEXHALER [Suspect]
     Indication: ASTHMA
     Dosage: 180 MCG ONE PUFF TWO TIMES A DAY
     Route: 055

REACTIONS (5)
  - BLOOD PRESSURE ABNORMAL [None]
  - THYROID DISORDER [None]
  - DRUG INEFFECTIVE [None]
  - BLOOD CHOLESTEROL ABNORMAL [None]
  - CARDIAC DISORDER [None]
